FAERS Safety Report 6022556-8 (Version None)
Quarter: 2008Q4

REPORT INFORMATION
  Report Type: 
  Country: None (occurrence: None)
  Receive Date: 20081230
  Receipt Date: 20081219
  Transmission Date: 20090506
  Serious: Yes (Hospitalization)
  Sender: FDA-Public Use
  Company Number: PHHY2008JP31744

PATIENT

DRUGS (1)
  1. NEORAL [Suspect]
     Dosage: 100 MG/DAY
     Route: 048

REACTIONS (2)
  - FRACTURE [None]
  - FRACTURE DELAYED UNION [None]
